FAERS Safety Report 7900028-0 (Version None)
Quarter: 2011Q4

REPORT INFORMATION
  Report Type: 
  Country: None (occurrence: None)
  Receive Date: 20111108
  Receipt Date: 20111027
  Transmission Date: 20120403
  Serious: Yes (Hospitalization)
  Sender: FDA-Public Use
  Company Number: DE-RANBAXY-2011US-50076

PATIENT

DRUGS (8)
  1. COTRIM [Suspect]
     Indication: PROPHYLAXIS
     Dosage: 450MG, UNK
     Route: 048
     Dates: start: 20110629, end: 20110919
  2. SANDIMMUNE [Suspect]
     Indication: PRODUCT USED FOR UNKNOWN INDICATION
     Dosage: 1160MG, UNK, DAILY
     Route: 048
     Dates: start: 20110625, end: 20110906
  3. AZITHROMYCIN [Suspect]
     Indication: PROPHYLAXIS
     Dosage: 250 MG, UNK
     Route: 048
     Dates: start: 20110629, end: 20110919
  4. MYCOPHENOLATE MOFETIL [Suspect]
     Indication: GRAFT VERSUS HOST DISEASE
     Dosage: 800MG, UNK
     Route: 048
     Dates: start: 20110628, end: 20110726
  5. PANTOPRAZOLE SODIUM [Suspect]
     Indication: PRODUCT USED FOR UNKNOWN INDICATION
     Dosage: 40MG, UNK
     Route: 048
     Dates: start: 20110629, end: 20110919
  6. PREDNISOLONE [Suspect]
     Indication: PROPHYLAXIS
     Dosage: 2.5MG, UNK
     Route: 048
     Dates: start: 20110625, end: 20110919
  7. CLINDAMYCIN [Suspect]
     Indication: PROPHYLAXIS
     Dosage: 600MG, UNKNOWN
     Route: 048
     Dates: start: 20110624, end: 20110919
  8. VALACYCLOVIR [Suspect]
     Indication: PROPHYLAXIS
     Dosage: 1000MG, UNK, DAILY
     Route: 048
     Dates: start: 20110629, end: 20110919

REACTIONS (3)
  - CONCOMITANT DISEASE PROGRESSION [None]
  - RASH PUSTULAR [None]
  - PYREXIA [None]
